FAERS Safety Report 22061519 (Version 1)
Quarter: 2023Q1

REPORT INFORMATION
  Report Type: Report from Study
  Country: CO (occurrence: CO)
  Receive Date: 20230304
  Receipt Date: 20230304
  Transmission Date: 20230418
  Serious: Yes (Disabling, Other)
  Sender: FDA-Public Use
  Company Number: CO-ABBVIE-22K-036-4481831-00

PATIENT
  Sex: Female
  Weight: 66 kg

DRUGS (2)
  1. HUMIRA [Suspect]
     Active Substance: ADALIMUMAB
     Indication: Psoriasis
     Route: 058
     Dates: start: 20081110, end: 20220615
  2. ALLEGRA [Concomitant]
     Active Substance: FEXOFENADINE HYDROCHLORIDE
     Indication: Sinusitis
     Route: 048
     Dates: end: 2022

REACTIONS (30)
  - Fibromyalgia [Not Recovered/Not Resolved]
  - Nasal septal operation [Recovering/Resolving]
  - Vertigo [Recovering/Resolving]
  - Pain [Not Recovered/Not Resolved]
  - Diarrhoea [Recovered/Resolved]
  - Sinusitis [Recovering/Resolving]
  - Dysphonia [Recovering/Resolving]
  - Procedural headache [Recovered/Resolved]
  - Nasal congestion [Recovering/Resolving]
  - Pain in extremity [Not Recovered/Not Resolved]
  - Pain in extremity [Recovering/Resolving]
  - Pain [Not Recovered/Not Resolved]
  - Arthralgia [Recovering/Resolving]
  - Dysstasia [Recovering/Resolving]
  - Fatigue [Not Recovered/Not Resolved]
  - Muscular weakness [Not Recovered/Not Resolved]
  - Exposure to SARS-CoV-2 [Recovering/Resolving]
  - Bronchitis [Unknown]
  - Laboratory test abnormal [Recovered/Resolved]
  - Pain [Recovering/Resolving]
  - Sinusitis [Recovering/Resolving]
  - Nasal mucosal hypertrophy [Recovering/Resolving]
  - Nasal turbinate hypertrophy [Recovering/Resolving]
  - Exostosis [Recovering/Resolving]
  - Dizziness [Recovering/Resolving]
  - Nasal septum deviation [Recovering/Resolving]
  - Headache [Recovering/Resolving]
  - Mobility decreased [Unknown]
  - Nasal turbinate abnormality [Recovering/Resolving]
  - Exposure to communicable disease [Unknown]

NARRATIVE: CASE EVENT DATE: 20150101
